FAERS Safety Report 8359363-7 (Version None)
Quarter: 2012Q2

REPORT INFORMATION
  Report Type: 
  Country: None (occurrence: None)
  Receive Date: 20120514
  Receipt Date: 20120514
  Transmission Date: 20120825
  Serious: Yes (Disabling, Other)
  Sender: FDA-Public Use
  Company Number: None

PATIENT
  Age: 50 Year
  Sex: Male
  Weight: 158.759 kg

DRUGS (1)
  1. CYMBALTA [Suspect]
     Indication: OSTEOARTHRITIS
     Dosage: 30MGS ONCE A DAY
     Dates: start: 20100601, end: 20120506

REACTIONS (18)
  - MALAISE [None]
  - FATIGUE [None]
  - HOT FLUSH [None]
  - PALPITATIONS [None]
  - VISUAL IMPAIRMENT [None]
  - PERSONALITY CHANGE [None]
  - CHEST PAIN [None]
  - SUICIDAL IDEATION [None]
  - PARAESTHESIA [None]
  - IRRITABILITY [None]
  - CHROMATURIA [None]
  - DRUG WITHDRAWAL SYNDROME [None]
  - VOMITING [None]
  - COMPULSIVE SHOPPING [None]
  - ASTHENIA [None]
  - MENTAL IMPAIRMENT [None]
  - PAIN [None]
  - URINE ODOUR ABNORMAL [None]
